FAERS Safety Report 20107993 (Version 1)
Quarter: 2021Q4

REPORT INFORMATION
  Report Type: Spontaneous
  Country: US (occurrence: US)
  Receive Date: 20211124
  Receipt Date: 20211124
  Transmission Date: 20220303
  Serious: No
  Sender: FDA-Public Use
  Company Number: US-KERYX BIOPHARMACEUTICALS INC.-2020US007067

PATIENT
  Sex: Male

DRUGS (1)
  1. AURYXIA [Suspect]
     Active Substance: TETRAFERRIC TRICITRATE DECAHYDRATE
     Indication: Hyperphosphataemia
     Dosage: 3 GRAM (TABLET) WITH EACH MEAL AND ONE TABLET WITH SNACK
     Route: 048

REACTIONS (3)
  - Transferrin saturation increased [Unknown]
  - Serum ferritin increased [Unknown]
  - Haemoglobin increased [Unknown]
